FAERS Safety Report 20052160 (Version 2)
Quarter: 2021Q4

REPORT INFORMATION
  Report Type: Spontaneous
  Country: US (occurrence: US)
  Receive Date: 20211110
  Receipt Date: 20211123
  Transmission Date: 20220303
  Serious: Yes (Other)
  Sender: FDA-Public Use
  Company Number: US-PURACAP-US-2021EPCSPO01171

PATIENT

DRUGS (1)
  1. MUCINEX SINUS-MAX DAY NIGHT [Suspect]
     Active Substance: ACETAMINOPHEN\DIPHENHYDRAMINE HYDROCHLORIDE\GUAIFENESIN\PHENYLEPHRINE HYDROCHLORIDE
     Indication: Product used for unknown indication
     Route: 065

REACTIONS (4)
  - Choking [Unknown]
  - Product use complaint [Unknown]
  - Foreign body in throat [Unknown]
  - Product size issue [Recovered/Resolved with Sequelae]
